FAERS Safety Report 12714805 (Version 1)
Quarter: 2016Q3

REPORT INFORMATION
  Report Type: Report from Study
  Country: DE (occurrence: DE)
  Receive Date: 20160905
  Receipt Date: 20160905
  Transmission Date: 20161109
  Serious: Yes (Other)
  Sender: FDA-Public Use
  Company Number: DE-VIFOR (INTERNATIONAL) INC.-VIT-2016-04411

PATIENT
  Age: 39 Year
  Sex: Female

DRUGS (2)
  1. MIRCERA [Suspect]
     Active Substance: METHOXY POLYETHYLENE GLYCOL-EPOETIN BETA
     Indication: NEPHROGENIC ANAEMIA
     Dosage: 100 - 120 MICROGRAM
     Route: 042
     Dates: start: 20110127, end: 20121004
  2. MIRCERA [Suspect]
     Active Substance: METHOXY POLYETHYLENE GLYCOL-EPOETIN BETA
     Indication: NEPHROGENIC ANAEMIA
     Dosage: 100 - 120 MICROGRAM
     Route: 058
     Dates: start: 20110127, end: 20121004

REACTIONS (2)
  - Benign pancreatic neoplasm [Recovered/Resolved]
  - Gangrene [Recovering/Resolving]

NARRATIVE: CASE EVENT DATE: 20120720
